FAERS Safety Report 20810275 (Version 1)
Quarter: 2022Q2

REPORT INFORMATION
  Report Type: Spontaneous
  Country: US (occurrence: None)
  Receive Date: 20220510
  Receipt Date: 20220510
  Transmission Date: 20220721
  Serious: Yes (Hospitalization)
  Sender: FDA-Public Use
  Company Number: None

PATIENT
  Sex: Male

DRUGS (13)
  1. NOVAREL [Suspect]
     Active Substance: CHORIOGONADOTROPIN ALFA
     Indication: Infertility male
     Dosage: FREQUENCY : TWICE A DAY;?
     Route: 030
     Dates: start: 20210803
  2. ANASTROZOLE TAB [Concomitant]
  3. AZITHROMYCIN [Concomitant]
  4. BUSPIRONE TAB [Concomitant]
  5. ESCITALOPRAM TAB [Concomitant]
  6. FAMOTIDINE [Concomitant]
     Active Substance: FAMOTIDINE
  7. HYDROMORPHON TAB [Concomitant]
  8. LIDOCAINE SOL VISC [Concomitant]
  9. LORAZEPAM TAB [Concomitant]
  10. LOSARTAN POT TAB [Concomitant]
  11. LOVASTATIN TAB [Concomitant]
  12. PANTOPRAZOLE TAB [Concomitant]
  13. PROPRANOLOL TAB [Concomitant]

REACTIONS (1)
  - Therapy interrupted [None]
